FAERS Safety Report 4909219-4 (Version None)
Quarter: 2006Q1

REPORT INFORMATION
  Report Type: 
  Country: None (occurrence: None)
  Receive Date: 20060213
  Receipt Date: 20060206
  Transmission Date: 20060701
  Serious: Yes (Hospitalization, Other)
  Sender: FDA-Public Use
  Company Number: PHBS2006JP02126

PATIENT
  Age: 17 Year
  Sex: Male

DRUGS (5)
  1. PARLODEL [Suspect]
     Dosage: 2.5 MG/DAY
     Route: 048
     Dates: end: 20060201
  2. ALEVIATIN [Suspect]
     Route: 048
     Dates: end: 20060201
  3. EXCEGRAN [Concomitant]
     Route: 048
  4. TAKEPRON [Concomitant]
     Route: 048
  5. MUCOSOLVAN [Concomitant]
     Route: 048

REACTIONS (5)
  - BLOOD CREATINE PHOSPHOKINASE INCREASED [None]
  - DISSEMINATED INTRAVASCULAR COAGULATION [None]
  - HEPATIC FAILURE [None]
  - NEUROLEPTIC MALIGNANT SYNDROME [None]
  - PYREXIA [None]
